FAERS Safety Report 20047813 (Version 6)
Quarter: 2022Q1

REPORT INFORMATION
  Report Type: Spontaneous
  Country: PT (occurrence: PT)
  Receive Date: 20211109
  Receipt Date: 20220112
  Transmission Date: 20220424
  Serious: Yes (Hospitalization, Other)
  Sender: FDA-Public Use
  Company Number: PT-AUROBINDO-AUR-APL-2021-045658

PATIENT
  Age: 90 Year
  Sex: Male

DRUGS (6)
  1. FLUCONAZOLE [Suspect]
     Active Substance: FLUCONAZOLE
     Indication: Pneumonia
     Dosage: 100 MILLIGRAM, ONCE A DAY
     Route: 065
  2. FLUCONAZOLE [Suspect]
     Active Substance: FLUCONAZOLE
     Indication: Candida infection
     Dosage: 400 MILLIGRAM, ONCE A DAY
     Route: 065
  3. ERTAPENEM [Suspect]
     Active Substance: ERTAPENEM
     Indication: Pneumonia
     Dosage: UNK
     Route: 065
  4. ERTAPENEM [Suspect]
     Active Substance: ERTAPENEM
     Indication: Klebsiella infection
  5. LINEZOLID [Suspect]
     Active Substance: LINEZOLID
     Indication: Pneumonia
     Dosage: UNK
     Route: 065
  6. PIPERACILLIN AND TAZOBACTAM [Suspect]
     Active Substance: PIPERACILLIN SODIUM\TAZOBACTAM SODIUM
     Indication: Pneumonia
     Dosage: UNK
     Route: 065

REACTIONS (5)
  - Hepatotoxicity [Recovered/Resolved]
  - Choroiditis [Recovered/Resolved]
  - Candida infection [Unknown]
  - Fungaemia [Recovered/Resolved]
  - Off label use [Unknown]
